FAERS Safety Report 16018103 (Version 1)
Quarter: 2019Q1

REPORT INFORMATION
  Report Type: Spontaneous
  Country: US (occurrence: US)
  Receive Date: 20190228
  Receipt Date: 20190228
  Transmission Date: 20190418
  Serious: Yes (Other)
  Sender: FDA-Public Use
  Company Number: US-MALLINCKRODT-T201901978

PATIENT
  Age: 61 Year
  Sex: Male
  Weight: 111 kg

DRUGS (1)
  1. FENTANYL TRANSDERMAL SYSTEM [Suspect]
     Active Substance: FENTANYL
     Indication: BACK PAIN
     Dosage: 50 MCG/H, EVERY 3 DAYS
     Route: 062
     Dates: start: 2007

REACTIONS (5)
  - Poor peripheral circulation [Unknown]
  - Autoimmune disorder [Unknown]
  - Arteriovenous fistula [Unknown]
  - Initial insomnia [Unknown]
  - Plasmapheresis [Unknown]
